FAERS Safety Report 9284324 (Version 1)
Quarter: 2013Q2

REPORT INFORMATION
  Report Type: Spontaneous
  Country: BR (occurrence: BR)
  Receive Date: 20130510
  Receipt Date: 20130510
  Transmission Date: 20140414
  Serious: Yes (Other)
  Sender: FDA-Public Use
  Company Number: BR-PFIZER INC-2013141209

PATIENT
  Age: 59 Year
  Sex: Male
  Weight: 78 kg

DRUGS (4)
  1. CITALOR [Suspect]
     Indication: BLOOD CHOLESTEROL
     Dosage: 20 MG (ONE TABLET), 1X/DAY
     Route: 048
     Dates: start: 20110306
  2. AAS PROTECT [Concomitant]
     Indication: ANTICOAGULANT THERAPY
     Dosage: 100 MG (ONE TABLET OR CAPSULE), 1X/DAY
     Dates: start: 2011
  3. NAPRIX A [Concomitant]
     Indication: BLOOD PRESSURE INCREASED
     Dosage: ONE TABLET OR CAPSULE [AMLODIPINE BESILATE 10MG] / [RAMIPRIL 10MG], ONCE DAILY
     Dates: start: 2010
  4. NAPRIX D [Concomitant]
     Indication: BLOOD PRESSURE INCREASED
     Dosage: ONE TABLET OR CAPSULE [RAMIPRIL 5MG] / [HYDROCHLOROTHIAZIDE 12.5MG], ONCE DAILY
     Dates: start: 2010

REACTIONS (1)
  - Diabetes mellitus [Not Recovered/Not Resolved]
